FAERS Safety Report 7083698-1 (Version None)
Quarter: 2010Q4

REPORT INFORMATION
  Report Type: 
  Country: None (occurrence: None)
  Receive Date: 20101104
  Receipt Date: 20101012
  Transmission Date: 20110411
  Serious: Yes (Hospitalization)
  Sender: FDA-Public Use
  Company Number: US-SANOFI-AVENTIS-2010SA065092

PATIENT
  Age: 76 Year
  Sex: Male
  Weight: 83 kg

DRUGS (10)
  1. PLAVIX [Suspect]
     Indication: POOR PERIPHERAL CIRCULATION
     Route: 048
     Dates: start: 20090101, end: 20090101
  2. PLAVIX [Suspect]
     Route: 048
     Dates: start: 20090101, end: 20090101
  3. PLAVIX [Suspect]
     Route: 048
     Dates: start: 20100101, end: 20100101
  4. PLAVIX [Suspect]
     Route: 048
     Dates: start: 20100101, end: 20100101
  5. PLAVIX [Suspect]
     Route: 048
     Dates: start: 20100101, end: 20101001
  6. PLAVIX [Suspect]
     Route: 048
     Dates: start: 20100101, end: 20101001
  7. ASPIRIN [Suspect]
     Route: 048
     Dates: start: 20090101, end: 20100101
  8. FINASTERIDE [Concomitant]
  9. CARVEDILOL [Concomitant]
  10. SIMVASTATIN [Concomitant]

REACTIONS (4)
  - MUSCULAR WEAKNESS [None]
  - NIGHT SWEATS [None]
  - PERIPHERAL COLDNESS [None]
  - URINARY RETENTION [None]
